FAERS Safety Report 6548550-6 (Version None)
Quarter: 2010Q1

REPORT INFORMATION
  Report Type: 
  Country: None (occurrence: None)
  Receive Date: 20100124
  Receipt Date: 20090818
  Transmission Date: 20100710
  Serious: No
  Sender: FDA-Public Use
  Company Number: US-ALLERGAN-0911459US

PATIENT
  Age: 62 Year
  Sex: Female

DRUGS (4)
  1. RESTASIS [Suspect]
     Indication: DRY EYE
     Dosage: 1 GTT, BID
     Route: 047
     Dates: start: 20090812
  2. PLAVIX [Concomitant]
  3. LASIX [Concomitant]
  4. BETA BLOCKING AGENTS [Concomitant]

REACTIONS (2)
  - HEADACHE [None]
  - SOMNOLENCE [None]
